FAERS Safety Report 4640332-5 (Version None)
Quarter: 2005Q2

REPORT INFORMATION
  Report Type: 
  Country: None (occurrence: None)
  Receive Date: 20050419
  Receipt Date: 20050411
  Transmission Date: 20051028
  Serious: Yes (Hospitalization)
  Sender: FDA-Public Use
  Company Number: 2005UW05576

PATIENT
  Age: 25 Year
  Sex: Female

DRUGS (1)
  1. SEROQUEL [Suspect]
     Indication: PSYCHOTIC DISORDER
     Dosage: 100 MG BID PO
     Route: 048

REACTIONS (2)
  - ABNORMAL BEHAVIOUR [None]
  - THINKING ABNORMAL [None]
